FAERS Safety Report 18740739 (Version 2)
Quarter: 2021Q1

REPORT INFORMATION
  Report Type: Spontaneous
  Country: RU (occurrence: RU)
  Receive Date: 20210114
  Receipt Date: 20210128
  Transmission Date: 20210419
  Serious: No
  Sender: FDA-Public Use
  Company Number: RU-BEH-2021127234

PATIENT
  Age: 32 Year
  Sex: Female

DRUGS (5)
  1. HUMAN IMMUNOGLOBULIN (INN) [Suspect]
     Active Substance: HUMAN IMMUNOGLOBULIN G
     Indication: PARVOVIRUS B19 INFECTION
     Dosage: 5000 MILLIGRAM, QD
     Route: 042
     Dates: start: 201809
  2. TENOFOVIR [Concomitant]
     Active Substance: TENOFOVIR
  3. LAMIVUDINE. [Concomitant]
     Active Substance: LAMIVUDINE
  4. EFAVIRENZ. [Concomitant]
     Active Substance: EFAVIRENZ
  5. HUMAN IMMUNOGLOBULIN (INN) [Suspect]
     Active Substance: HUMAN IMMUNOGLOBULIN G
     Dosage: 20000 MILLIGRAM, QD
     Route: 042
     Dates: end: 201903

REACTIONS (2)
  - Off label use [Not Recovered/Not Resolved]
  - Drug ineffective for unapproved indication [Not Recovered/Not Resolved]
